FAERS Safety Report 16653693 (Version 19)
Quarter: 2022Q2

REPORT INFORMATION
  Report Type: Report from Study
  Country: AR (occurrence: AR)
  Receive Date: 20190731
  Receipt Date: 20220608
  Transmission Date: 20220721
  Serious: Yes (Hospitalization, Other)
  Sender: FDA-Public Use
  Company Number: AR-002147023-PHHY2019AR168126

PATIENT

DRUGS (6)
  1. RUXOLITINIB [Suspect]
     Active Substance: RUXOLITINIB
     Indication: Myelofibrosis
     Dosage: 20 MG, BID
     Route: 048
     Dates: start: 20190324
  2. RUXOLITINIB [Suspect]
     Active Substance: RUXOLITINIB
     Dosage: 10 MG, BID
     Route: 048
     Dates: start: 20190524
  3. RUXOLITINIB [Suspect]
     Active Substance: RUXOLITINIB
     Dosage: 20 MG, BID
     Route: 048
     Dates: start: 20190524
  4. RUXOLITINIB [Suspect]
     Active Substance: RUXOLITINIB
     Dosage: 40 MG, BID
     Route: 048
     Dates: start: 20190524
  5. RUXOLITINIB [Suspect]
     Active Substance: RUXOLITINIB
     Dosage: 20 MG, QD
     Route: 048
     Dates: start: 20190525
  6. RUXOLITINIB [Suspect]
     Active Substance: RUXOLITINIB
     Dosage: 10 MG, Q12H (SPLIT 20 MG TABLET TO TAKE 10 MG EVERY 12 HOURS)
     Route: 048

REACTIONS (24)
  - Haematocrit abnormal [Unknown]
  - Haemoglobin abnormal [Unknown]
  - Tongue ulceration [Recovering/Resolving]
  - General physical health deterioration [Unknown]
  - Pyrexia [Unknown]
  - Splenomegaly [Unknown]
  - Gingival bleeding [Recovering/Resolving]
  - Illness [Unknown]
  - Liver iron concentration abnormal [Not Recovered/Not Resolved]
  - Overdose [Unknown]
  - Inappropriate schedule of product administration [Unknown]
  - Drug ineffective [Unknown]
  - Haemoglobin decreased [Recovering/Resolving]
  - Drug intolerance [Unknown]
  - Feeling abnormal [Unknown]
  - Malaise [Unknown]
  - Stomatitis [Unknown]
  - Product prescribing error [Unknown]
  - Pneumonia [Unknown]
  - Myelofibrosis [Not Recovered/Not Resolved]
  - Vein rupture [Recovering/Resolving]
  - Wrong technique in product usage process [Unknown]
  - Ear pain [Unknown]
  - Epistaxis [Unknown]

NARRATIVE: CASE EVENT DATE: 20190525
